FAERS Safety Report 20309945 (Version 10)
Quarter: 2025Q2

REPORT INFORMATION
  Report Type: Spontaneous
  Country: US (occurrence: US)
  Receive Date: 20220107
  Receipt Date: 20250623
  Transmission Date: 20250716
  Serious: No
  Sender: PFIZER
  Company Number: US-PFIZER INC-202101433023

PATIENT
  Age: 85 Year
  Sex: Female
  Weight: 66.68 kg

DRUGS (11)
  1. PREMARIN [Suspect]
     Active Substance: ESTROGENS, CONJUGATED
     Indication: Vaginal odour
     Route: 067
     Dates: start: 202208
  2. PREMARIN [Suspect]
     Active Substance: ESTROGENS, CONJUGATED
     Dosage: INSERT 0.5 APPLICATIONFUL, ONCE A WEEK/EVERY WEEK
     Route: 067
  3. PREMARIN [Suspect]
     Active Substance: ESTROGENS, CONJUGATED
     Dosage: 45 APPLICATORS (0.5 QD)
  4. AZELASTINE [Concomitant]
     Active Substance: AZELASTINE
     Dosage: UNK, DAILY
  5. CELECOXIB [Concomitant]
     Active Substance: CELECOXIB
     Route: 048
  6. CETIRIZINE [Concomitant]
     Active Substance: CETIRIZINE HYDROCHLORIDE
     Indication: Hypersensitivity
     Dosage: UNK, DAILY
  7. FLUTICASONE [Concomitant]
     Active Substance: FLUTICASONE
     Dosage: UNK, DAILY
  8. LEVOTHYROXINE [Concomitant]
     Active Substance: LEVOTHYROXINE
     Indication: Thyrotoxic crisis
     Dosage: UNK (ALTERNATING DAILY DOSE OF 88 AND 75 )
     Dates: start: 1993
  9. OMEPRAZOLE [Concomitant]
     Active Substance: OMEPRAZOLE
     Indication: Gastrooesophageal reflux disease
     Dosage: UNK, DAILY (START: DATE UNKNOWN OTHER THAN EASILY A COUPLE OF YEARS AGO)
  10. TRELEGY ELLIPTA [Concomitant]
     Active Substance: FLUTICASONE FUROATE\UMECLIDINIUM BROMIDE\VILANTEROL TRIFENATATE
     Indication: Chronic obstructive pulmonary disease
     Dosage: UNK (INHALER USED DAILY)
     Dates: start: 202103
  11. VENTOLIN [Concomitant]
     Active Substance: ALBUTEROL SULFATE
     Indication: Chronic obstructive pulmonary disease
     Dosage: UNK (INHALER USED DAILY)
     Dates: start: 202103

REACTIONS (4)
  - Dysphonia [Unknown]
  - Product prescribing error [Unknown]
  - Wrong technique in product usage process [Unknown]
  - Off label use [Unknown]

NARRATIVE: CASE EVENT DATE: 20220801
